FAERS Safety Report 20416867 (Version 3)
Quarter: 2022Q3

REPORT INFORMATION
  Report Type: Spontaneous
  Country: US (occurrence: US)
  Receive Date: 20220202
  Receipt Date: 20220803
  Transmission Date: 20221027
  Serious: Yes (Other)
  Sender: FDA-Public Use
  Company Number: US-PFIZER INC-202200132606

PATIENT
  Age: 77 Year
  Sex: Female
  Weight: 70.31 kg

DRUGS (8)
  1. AROMASIN [Suspect]
     Active Substance: EXEMESTANE
     Indication: Breast cancer
     Dosage: 25 MG, ONCE A DAY IN THE EVENING
  2. AROMASIN [Suspect]
     Active Substance: EXEMESTANE
     Dosage: 25 MG, 1X/DAY
     Route: 048
     Dates: start: 202202, end: 202206
  3. AROMASIN [Suspect]
     Active Substance: EXEMESTANE
     Dosage: UNK
     Dates: start: 20220717
  4. ROSUVASTATIN [Concomitant]
     Active Substance: ROSUVASTATIN
     Dosage: 5 MG, 1X/DAY (IN THE EVENING)
  5. VITAMIN B12 [Concomitant]
     Active Substance: CYANOCOBALAMIN
     Dosage: 2500 UG, 1X/DAY (ONCE IN A DAY IN THE EVENING)
  6. VITAMIN E [Concomitant]
     Active Substance: .ALPHA.-TOCOPHEROL
     Dosage: 180 MG
  7. MINERALS\VITAMINS [Concomitant]
     Active Substance: MINERALS\VITAMINS
     Dosage: UNK
  8. EPLERENONE [Concomitant]
     Active Substance: EPLERENONE
     Indication: Diuretic therapy
     Dosage: 25 MG
     Dates: start: 20220715

REACTIONS (8)
  - Hypertension [Not Recovered/Not Resolved]
  - Rash erythematous [Not Recovered/Not Resolved]
  - Rash pruritic [Unknown]
  - Peripheral swelling [Unknown]
  - Swelling [Unknown]
  - Paraesthesia [Unknown]
  - Poor quality sleep [Unknown]
  - Insomnia [Unknown]
